FAERS Safety Report 6436791-8 (Version None)
Quarter: 2009Q4

REPORT INFORMATION
  Report Type: 
  Country: None (occurrence: None)
  Receive Date: 20091109
  Receipt Date: 20091026
  Transmission Date: 20100525
  Serious: Yes (Other)
  Sender: FDA-Public Use
  Company Number: CIP09002976

PATIENT
  Sex: Female

DRUGS (1)
  1. ACTONEL [Suspect]
     Dosage: ORAL
     Route: 048
     Dates: start: 20030101

REACTIONS (2)
  - INTRAOCULAR PRESSURE INCREASED [None]
  - MALIGNANT NEOPLASM OF EYE [None]
